FAERS Safety Report 5592995-8 (Version None)
Quarter: 2008Q1

REPORT INFORMATION
  Report Type: 
  Country: None (occurrence: None)
  Receive Date: 20080114
  Receipt Date: 20080114
  Transmission Date: 20080703
  Serious: Yes (Hospitalization)
  Sender: FDA-Public Use
  Company Number: None

PATIENT
  Sex: Female

DRUGS (2)
  1. CELLCEPT [Suspect]
     Indication: PROPHYLAXIS AGAINST TRANSPLANT REJECTION
     Dosage: 500MG AM 250MG PM DAILY PO
     Route: 048
     Dates: start: 20060519
  2. PROGRAF [Suspect]
     Dosage: 2 MG AM 1 MG PM DAILY PO
     Route: 048
     Dates: start: 20060520

REACTIONS (1)
  - ACUTE MYOCARDIAL INFARCTION [None]
